FAERS Safety Report 9667026 (Version 1)
Quarter: 2013Q4

REPORT INFORMATION
  Report Type: Spontaneous
  Country: US (occurrence: US)
  Receive Date: 20131104
  Receipt Date: 20131104
  Transmission Date: 20140711
  Serious: No
  Sender: FDA-Public Use
  Company Number: US-BIOGENIDEC-2013BI089224

PATIENT
  Age: 38 Year
  Sex: Female
  Weight: 75 kg

DRUGS (11)
  1. TECFIDERA [Suspect]
     Indication: PRODUCT USED FOR UNKNOWN INDICATION
     Route: 048
  2. TECFIDERA [Suspect]
     Indication: PRODUCT USED FOR UNKNOWN INDICATION
     Route: 048
  3. CYMBALTA [Concomitant]
  4. LORAZEPAM [Concomitant]
  5. IBUPROFEN [Concomitant]
  6. ACETAMINOPHEN [Concomitant]
  7. SUMATRIPTAN SPR [Concomitant]
  8. KETOCONAZOLE SHA 2% [Concomitant]
  9. POTASSIUM [Concomitant]
  10. FISH OIL [Concomitant]
  11. MULTIVITAMIN [Concomitant]

REACTIONS (3)
  - Depression [Unknown]
  - Anxiety [Unknown]
  - Nasopharyngitis [Unknown]
